FAERS Safety Report 8795965 (Version 2)
Quarter: 2012Q4

REPORT INFORMATION
  Report Type: 
  Country: PH (occurrence: PH)
  Receive Date: 20120920
  Receipt Date: 20121009
  Transmission Date: 20130627
  Serious: Yes (Death, Life-Threatening, Hospitalization, Disabling)
  Sender: FDA-Public Use
  Company Number: PH-009507513-1209PHL007905

PATIENT
  Age: 46 Year
  Sex: Female
  Weight: 65 kg

DRUGS (11)
  1. LASIX (FUROSEMIDE SODIUM) [Concomitant]
     Dosage: 40 mg, qd 8 am
     Dates: start: 20120401
  2. BUSCOPAN [Concomitant]
     Dosage: given at 2pm, q8h
     Dates: start: 20120428
  3. RISPERIDONE [Concomitant]
     Dosage: 1/2 tablet given at 6:30pm, qd
     Dates: start: 20120503
  4. FLUCONAZOLE [Concomitant]
     Dosage: 1 tablet at 8pm, qd
     Dates: start: 20120502
  5. THERABLOC [Concomitant]
     Dosage: given at 8pm, qd
     Dates: start: 20120425
  6. FUROSEMIDE [Concomitant]
     Dosage: UNK, q12h
  7. LOSARTAN POTASSIUM [Suspect]
     Dosage: once a day at 8am
     Dates: start: 20120428
  8. SENOKOT [Suspect]
     Dosage: once a day at 8pm
     Dates: start: 20120427
  9. INVANZ [Suspect]
     Indication: INFECTIOUS PERITONITIS
     Dosage: 1000 mg, qd
     Route: 041
     Dates: start: 20120430, end: 20120503
  10. LANSOPRAZOLE [Concomitant]
     Dosage: 30 mg,once a day at 8 am
     Dates: start: 20120425
  11. VALIUM [Concomitant]
     Dosage: 1 DF, tid at 8am
     Dates: start: 20120427

REACTIONS (2)
  - Death [Fatal]
  - Partial seizures [Not Recovered/Not Resolved]
